FAERS Safety Report 6519967-0 (Version None)
Quarter: 2009Q4

REPORT INFORMATION
  Report Type: 
  Country: None (occurrence: None)
  Receive Date: 20091229
  Receipt Date: 20091117
  Transmission Date: 20100525
  Serious: Yes (Death, Congenital Anomaly)
  Sender: FDA-Public Use
  Company Number: FR-JNJFOC-20091105672

PATIENT

DRUGS (7)
  1. GYNO DAKTARIN [Suspect]
  2. GYNO DAKTARIN [Suspect]
     Indication: DRUG EXPOSURE DURING PREGNANCY
  3. GENTALLINE [Suspect]
     Indication: DRUG EXPOSURE DURING PREGNANCY
  4. FURADANTIN [Suspect]
     Indication: DRUG EXPOSURE DURING PREGNANCY
     Route: 064
  5. AMYCOR [Suspect]
     Indication: DRUG EXPOSURE DURING PREGNANCY
     Route: 064
  6. COLIBACILLINUM [Suspect]
     Indication: DRUG EXPOSURE DURING PREGNANCY
  7. CRANBERRY EXTRACT [Suspect]
     Indication: DRUG EXPOSURE DURING PREGNANCY

REACTIONS (3)
  - AMNIOTIC CAVITY DISORDER [None]
  - AMNIOTIC FLUID VOLUME DECREASED [None]
  - HAEMATOMA [None]
